FAERS Safety Report 11249492 (Version 3)
Quarter: 2015Q3

REPORT INFORMATION
  Report Type: Spontaneous
  Country: US (occurrence: US)
  Receive Date: 20150708
  Receipt Date: 20150804
  Transmission Date: 20151125
  Serious: Yes (Other)
  Sender: FDA-Public Use
  Company Number: US-TEVA-575457USA

PATIENT
  Age: 88 Year
  Sex: Male

DRUGS (1)
  1. AZITHROMYCIN [Suspect]
     Active Substance: AZITHROMYCIN ANHYDROUS
     Indication: TOOTH INFECTION
     Route: 065

REACTIONS (17)
  - Neck pain [Unknown]
  - Vomiting [Unknown]
  - Rash [Unknown]
  - Drug ineffective [Unknown]
  - Oral pustule [Unknown]
  - Hepatic function abnormal [Unknown]
  - Platelet count decreased [Unknown]
  - Diarrhoea [Unknown]
  - Eye swelling [Unknown]
  - Musculoskeletal pain [Unknown]
  - Jaw disorder [Unknown]
  - Oxygen saturation decreased [Unknown]
  - Liver disorder [Unknown]
  - Acne [Unknown]
  - Headache [Unknown]
  - Somnolence [Unknown]
  - Nausea [Unknown]
